FAERS Safety Report 6941375-9 (Version None)
Quarter: 2010Q3

REPORT INFORMATION
  Report Type: 
  Country: None (occurrence: None)
  Receive Date: 20100825
  Receipt Date: 20100816
  Transmission Date: 20110219
  Serious: Yes (Life-Threatening)
  Sender: FDA-Public Use
  Company Number: NO-JNJFOC-20100805360

PATIENT
  Sex: Female

DRUGS (7)
  1. REMICADE [Suspect]
     Indication: RHEUMATOID ARTHRITIS
     Route: 042
  2. OXYCODONE HCL [Concomitant]
     Indication: PAIN
     Route: 048
  3. MIANSERIN [Concomitant]
     Indication: DEPRESSION
     Route: 048
  4. OXYCONTIN [Concomitant]
     Indication: PAIN
     Route: 048
  5. XANOR [Concomitant]
     Indication: DEPRESSION
     Route: 048
  6. NEURONTIN [Concomitant]
     Indication: PAIN
     Route: 048
  7. CIPRALEX [Concomitant]
     Indication: DEPRESSION
     Route: 048

REACTIONS (2)
  - C-REACTIVE PROTEIN INCREASED [None]
  - LUNG NEOPLASM MALIGNANT [None]
